FAERS Safety Report 10073247 (Version 2)
Quarter: 2014Q2

REPORT INFORMATION
  Report Type: Spontaneous
  Country: BR (occurrence: BR)
  Receive Date: 20140411
  Receipt Date: 20140430
  Transmission Date: 20141212
  Serious: Yes (Hospitalization)
  Sender: FDA-Public Use
  Company Number: BR-BAYER-2014-051645

PATIENT
  Sex: Female

DRUGS (5)
  1. ACETYLSALICYLIC ACID (} 100 MG) [Suspect]
     Dosage: 300 MG, UNK
  2. ACETYLSALICYLIC ACID({=100 MG) [Suspect]
     Dosage: 100 MG, QD
  3. CLOPIDOGREL [Suspect]
     Dosage: 600 MG, UNK
  4. CLOPIDOGREL [Suspect]
     Dosage: 75 MG, QD
  5. UNFRACTIONATED HEPARIN [Suspect]
     Dosage: 70 TO 100 U/ KG
     Route: 042

REACTIONS (2)
  - Myocardial infarction [None]
  - Thrombosis in device [None]
